FAERS Safety Report 13423219 (Version 1)
Quarter: 2017Q2

REPORT INFORMATION
  Report Type: Spontaneous
  Country: US (occurrence: US)
  Receive Date: 20170410
  Receipt Date: 20170410
  Transmission Date: 20170830
  Serious: Yes (Hospitalization, Other)
  Sender: FDA-Public Use
  Company Number: None

PATIENT
  Age: 70 Year
  Sex: Male
  Weight: 95.3 kg

DRUGS (1)
  1. VANCOMYCIN [Suspect]
     Active Substance: VANCOMYCIN
     Indication: PREOPERATIVE CARE
     Dosage: OTHER FREQUENCY:PREOP ONCE;?
     Route: 041
     Dates: start: 20170407, end: 20170407

REACTIONS (3)
  - No reaction on previous exposure to drug [None]
  - Anaphylactic reaction [None]
  - Infusion related reaction [None]

NARRATIVE: CASE EVENT DATE: 20170407
